FAERS Safety Report 12396534 (Version 1)
Quarter: 2016Q2

REPORT INFORMATION
  Report Type: Report from Study
  Country: DE (occurrence: DE)
  Receive Date: 20160524
  Receipt Date: 20160524
  Transmission Date: 20160815
  Serious: Yes (Death, Hospitalization)
  Sender: FDA-Public Use
  Company Number: DE-ROCHE-1761637

PATIENT
  Age: 72 Year
  Sex: Male
  Weight: 74 kg

DRUGS (15)
  1. 5-FU [Concomitant]
     Active Substance: FLUOROURACIL
     Route: 041
     Dates: start: 20150907, end: 20150925
  2. 5-FU [Concomitant]
     Active Substance: FLUOROURACIL
     Route: 041
     Dates: start: 20151207, end: 20151209
  3. FOLINIC ACID [Concomitant]
     Active Substance: LEUCOVORIN
     Route: 042
     Dates: start: 20151021, end: 20151022
  4. FOLINIC ACID [Concomitant]
     Active Substance: LEUCOVORIN
     Route: 042
     Dates: start: 20151207, end: 20151208
  5. OXALIPLATIN. [Concomitant]
     Active Substance: OXALIPLATIN
     Indication: COLORECTAL CANCER
     Route: 042
     Dates: start: 20150907, end: 20150923
  6. BEVACIZUMAB [Suspect]
     Active Substance: BEVACIZUMAB
     Dosage: LAST DOSE PRIOR TO THE EVENT: 07/DEC/2015
     Route: 042
  7. BEVACIZUMAB [Suspect]
     Active Substance: BEVACIZUMAB
     Indication: COLORECTAL CANCER
     Route: 042
     Dates: start: 20150907
  8. PANTOPRAZOL [Concomitant]
     Active Substance: PANTOPRAZOLE SODIUM
     Route: 042
     Dates: start: 201306
  9. FOLINIC ACID [Concomitant]
     Active Substance: LEUCOVORIN
     Indication: COLORECTAL CANCER
     Route: 042
     Dates: start: 20150907
  10. 5-FU [Concomitant]
     Active Substance: FLUOROURACIL
     Indication: COLORECTAL CANCER
     Route: 040
     Dates: start: 20150907, end: 20150924
  11. 5-FU [Concomitant]
     Active Substance: FLUOROURACIL
     Route: 040
     Dates: start: 20151021, end: 20151022
  12. 5-FU [Concomitant]
     Active Substance: FLUOROURACIL
     Route: 040
     Dates: start: 20151207, end: 20151208
  13. BEVACIZUMAB [Suspect]
     Active Substance: BEVACIZUMAB
     Dosage: LAST DOSE PRIOR TO THE EVENT: 21/OCT/2015
     Route: 042
     Dates: start: 20151021
  14. 5-FU [Concomitant]
     Active Substance: FLUOROURACIL
     Route: 041
     Dates: start: 20151021
  15. OXALIPLATIN. [Concomitant]
     Active Substance: OXALIPLATIN
     Route: 042
     Dates: start: 20151021, end: 20151021

REACTIONS (5)
  - Ileus [Fatal]
  - General physical health deterioration [Fatal]
  - Fatigue [Recovering/Resolving]
  - Mucosal inflammation [Recovered/Resolved]
  - Sepsis [Recovering/Resolving]

NARRATIVE: CASE EVENT DATE: 20150923
